FAERS Safety Report 5632480-8 (Version None)
Quarter: 2008Q1

REPORT INFORMATION
  Report Type: 
  Country: None (occurrence: None)
  Receive Date: 20080220
  Receipt Date: 20080212
  Transmission Date: 20080703
  Serious: Yes (Life-Threatening, Other)
  Sender: FDA-Public Use
  Company Number: JP-ABBOTT-08P-087-0437993-00

PATIENT
  Age: 62 Year
  Sex: Male
  Weight: 51 kg

DRUGS (11)
  1. SEVOFLURANE [Suspect]
     Indication: MAINTENANCE OF ANAESTHESIA
  2. SEVOFLURANE [Suspect]
     Dosage: 1.0-2.0%
  3. ATROPINE [Concomitant]
     Indication: PREMEDICATION
  4. PENTAZOCINE LACTATE [Concomitant]
     Indication: PREMEDICATION
  5. PENTAZOCINE LACTATE [Concomitant]
     Indication: MAINTENANCE OF ANAESTHESIA
     Route: 042
  6. HYDROXYZINE [Concomitant]
     Indication: PREMEDICATION
  7. THIAMYLAL [Concomitant]
     Indication: INDUCTION OF ANAESTHESIA
  8. SUXAMETHONIUM [Concomitant]
     Indication: INDUCTION OF ANAESTHESIA
  9. NITROUS OXIDE [Concomitant]
     Indication: MAINTENANCE OF ANAESTHESIA
  10. OXYGEN [Concomitant]
     Indication: MAINTENANCE OF ANAESTHESIA
  11. XYLOCAINE W/ EPINEPHRINE [Concomitant]
     Indication: INFILTRATION ANAESTHESIA
     Dosage: 10 ML OF  0.5% / 1:200,000

REACTIONS (3)
  - ANAESTHETIC COMPLICATION [None]
  - CARDIAC ARREST [None]
  - PROCEDURAL COMPLICATION [None]
